FAERS Safety Report 8695050 (Version 2)
Quarter: 2012Q4

REPORT INFORMATION
  Report Type: Report from Study
  Country: JP (occurrence: JP)
  Receive Date: 20120731
  Receipt Date: 20121025
  Transmission Date: 20130627
  Serious: Yes (Death, Hospitalization)
  Sender: FDA-Public Use
  Company Number: JP-ROCHE-1093481

PATIENT
  Age: 71 None
  Sex: Female

DRUGS (10)
  1. TOCILIZUMAB [Suspect]
     Indication: RHEUMATOID ARTHRITIS
     Route: 041
     Dates: start: 20080711, end: 20090119
  2. PREDNISOLONE [Concomitant]
     Indication: RHEUMATOID ARTHRITIS
     Route: 048
     Dates: end: 20081007
  3. PREDNISOLONE [Concomitant]
     Indication: RHEUMATOID ARTHRITIS
     Route: 048
     Dates: start: 20091218, end: 20101013
  4. URSO [Concomitant]
     Indication: BILE DUCT STONE
     Route: 048
     Dates: end: 20101004
  5. MUCOSTA [Concomitant]
     Indication: GASTRITIS
     Route: 048
  6. MARZULENE [Concomitant]
     Indication: GASTRITIS
     Route: 048
  7. ALOSENN [Concomitant]
     Indication: CONSTIPATION
     Route: 048
  8. PURSENNID [Concomitant]
     Indication: CONSTIPATION
     Route: 048
  9. LENDORMIN [Concomitant]
     Indication: INSOMNIA
     Route: 048
  10. PROTECADIN [Concomitant]
     Route: 048
     Dates: end: 20101004

REACTIONS (4)
  - Aortic aneurysm rupture [Recovered/Resolved]
  - Aortic aneurysm rupture [Fatal]
  - Abscess [Unknown]
  - Arterioenteric fistula [Unknown]
